FAERS Safety Report 15482311 (Version 6)
Quarter: 2020Q3

REPORT INFORMATION
  Report Type: Spontaneous
  Country: FR (occurrence: FR)
  Receive Date: 20181010
  Receipt Date: 20200929
  Transmission Date: 20201102
  Serious: Yes (Other)
  Sender: FDA-Public Use
  Company Number: FR-PFIZER INC-2018408374

PATIENT
  Age: 24 Year
  Sex: Male
  Weight: 72 kg

DRUGS (2)
  1. RULID [Suspect]
     Active Substance: ROXITHROMYCIN
     Indication: UPPER RESPIRATORY TRACT INFECTION
     Dosage: 300 MILLIGRAM, QD
     Route: 065
     Dates: start: 20180920, end: 20180929
  2. INIPOMP [Suspect]
     Active Substance: PANTOPRAZOLE SODIUM
     Indication: REFLUX GASTRITIS
     Dosage: 20 MILLIGRAM, QD
     Route: 065
     Dates: start: 20180925, end: 20180929

REACTIONS (5)
  - Duodenogastric reflux [Unknown]
  - Ischaemia [Recovered/Resolved]
  - Amaurosis [Recovered/Resolved]
  - Retinal artery spasm [Recovered/Resolved]
  - Blindness transient [Recovered/Resolved]

NARRATIVE: CASE EVENT DATE: 201809
